FAERS Safety Report 16014024 (Version 2)
Quarter: 2019Q1

REPORT INFORMATION
  Report Type: Report from Study
  Country: US (occurrence: US)
  Receive Date: 20190227
  Receipt Date: 20190308
  Transmission Date: 20190418
  Serious: Yes (Death)
  Sender: FDA-Public Use
  Company Number: US-BEH-2019099702

PATIENT
  Age: 1 Month
  Sex: Female

DRUGS (6)
  1. CLOPIDOGREL [Suspect]
     Active Substance: CLOPIDOGREL BISULFATE
     Indication: KAWASAKI^S DISEASE
     Route: 065
  2. HUMAN IMMUNOGLOBULIN (NON-COMPANY) [Suspect]
     Active Substance: HUMAN IMMUNOGLOBULIN G
     Indication: KAWASAKI^S DISEASE
     Dosage: 2000 MG/KG, TOT (ILLNESS DAY 6)
     Route: 042
  3. HUMAN IMMUNOGLOBULIN (NON-COMPANY) [Suspect]
     Active Substance: HUMAN IMMUNOGLOBULIN G
     Dosage: 2000 MG/KG, TOT
     Route: 042
  4. ASPIRIN. [Suspect]
     Active Substance: ASPIRIN
     Indication: KAWASAKI^S DISEASE
     Dosage: 80-100MG/KG/D
     Route: 065
  5. METHYLPREDNISOLONE. [Suspect]
     Active Substance: METHYLPREDNISOLONE
     Indication: KAWASAKI^S DISEASE
     Dosage: 30 MG/KG/DOSE
     Route: 042
  6. METHYLPREDNISOLONE. [Suspect]
     Active Substance: METHYLPREDNISOLONE
     Dosage: 30 MG/KG/DOSE
     Route: 042

REACTIONS (1)
  - Therapy non-responder [Fatal]
